FAERS Safety Report 7629717-2 (Version None)
Quarter: 2011Q3

REPORT INFORMATION
  Report Type: 
  Country: None (occurrence: None)
  Receive Date: 20110722
  Receipt Date: 20110715
  Transmission Date: 20111222
  Serious: Yes (Death)
  Sender: FDA-Public Use
  Company Number: JP-ROCHE-790549

PATIENT
  Sex: Male
  Weight: 56 kg

DRUGS (24)
  1. AVASTIN [Suspect]
     Indication: RECTAL CANCER METASTATIC
     Route: 041
     Dates: start: 20110523, end: 20110523
  2. AMARYL [Concomitant]
     Route: 048
     Dates: start: 20110406, end: 20110603
  3. WARFARIN SODIUM [Concomitant]
     Route: 048
     Dates: start: 20110421, end: 20110520
  4. NEOMALLERMIN-TR [Concomitant]
     Route: 048
     Dates: start: 20110508, end: 20110603
  5. ACECOL [Concomitant]
     Dosage: NOTE: 1-0-0.5-0
     Route: 048
     Dates: start: 20110404
  6. WARFARIN SODIUM [Concomitant]
     Route: 048
     Dates: start: 20110531
  7. OXALIPLATIN [Concomitant]
     Route: 041
     Dates: start: 20110523, end: 20110523
  8. FLUOROURACIL [Concomitant]
     Dosage: STOP DATE: MAY 2011.
     Route: 041
     Dates: start: 20110523
  9. LASIX [Concomitant]
     Route: 048
     Dates: start: 20110404
  10. NOVORAPID [Concomitant]
     Dosage: NOTE: 12-0-0-2
     Route: 058
     Dates: start: 20110523
  11. WARFARIN SODIUM [Concomitant]
     Route: 048
     Dates: start: 20110613
  12. LOXONIN [Concomitant]
     Route: 048
     Dates: start: 20110613
  13. METOPROLOL TARTRATE [Concomitant]
     Route: 048
     Dates: start: 20110404
  14. HARNAL D [Concomitant]
     Route: 048
     Dates: start: 20110406, end: 20110603
  15. WARFARIN SODIUM [Concomitant]
     Route: 048
     Dates: start: 20110521, end: 20110530
  16. BUP-4 [Concomitant]
     Route: 048
     Dates: start: 20110406, end: 20110603
  17. NOVORAPID [Concomitant]
     Dosage: NOTE: 6-4-4-0
     Route: 058
     Dates: start: 20110406, end: 20110523
  18. KYTRIL [Concomitant]
     Route: 041
     Dates: start: 20110523, end: 20110523
  19. CLARITHROMYCIN [Concomitant]
     Route: 048
     Dates: start: 20110613
  20. LEUCOVORIN CALCIUM [Concomitant]
     Route: 041
     Dates: start: 20110523, end: 20110523
  21. FLUOROURACIL [Concomitant]
     Route: 040
     Dates: start: 20110523, end: 20110523
  22. DEXAMETHASONE SODIUM PHOSPHATE [Concomitant]
     Route: 041
     Dates: start: 20110523, end: 20110523
  23. DIGOXIN [Concomitant]
     Route: 048
     Dates: start: 20110531
  24. LANSOPRAZOLE [Concomitant]
     Route: 048
     Dates: start: 20110613

REACTIONS (1)
  - CARDIAC FAILURE [None]
